FAERS Safety Report 23653881 (Version 1)
Quarter: 2024Q1

REPORT INFORMATION
  Report Type: Spontaneous
  Country: ES (occurrence: ES)
  Receive Date: 20240320
  Receipt Date: 20240320
  Transmission Date: 20240410
  Serious: Yes (Hospitalization)
  Sender: FDA-Public Use
  Company Number: None

PATIENT
  Age: 2 Year
  Sex: Male

DRUGS (6)
  1. TRILEPTAL [Suspect]
     Active Substance: OXCARBAZEPINE
     Indication: Infantile spasms
     Dosage: 2 ML, Q12H (29/11 ? 13/12 LA DOSIS FUE 2 ML/12H)
     Route: 048
     Dates: start: 20231129, end: 20231213
  2. TRILEPTAL [Suspect]
     Active Substance: OXCARBAZEPINE
     Dosage: 3 ML, Q12H (14/12 ? 20/12 LA DOSIS FUE 3 ML/12H)
     Route: 048
     Dates: start: 20231214, end: 20231220
  3. TRILEPTAL [Suspect]
     Active Substance: OXCARBAZEPINE
     Dosage: 4 ML, Q12H
     Route: 048
     Dates: start: 20231221, end: 20231222
  4. DIAZEPAM [Concomitant]
     Active Substance: DIAZEPAM
     Indication: Infantile spasms
     Dosage: 5 MG (ASNECESSARY)
     Route: 054
     Dates: start: 20221020
  5. KEPPRA [Concomitant]
     Active Substance: LEVETIRACETAM
     Indication: Infantile spasms
     Dosage: 4 ML, Q12H
     Route: 048
     Dates: start: 20221020
  6. VALPROATE SODIUM [Concomitant]
     Active Substance: VALPROATE SODIUM
     Indication: Infantile spasms
     Dosage: 1.4 ML, Q12H
     Route: 048
     Dates: start: 20221020

REACTIONS (1)
  - SJS-TEN overlap [Recovered/Resolved]

NARRATIVE: CASE EVENT DATE: 20231218
